FAERS Safety Report 15561441 (Version 1)
Quarter: 2018Q4

REPORT INFORMATION
  Report Type: Spontaneous
  Country: US (occurrence: US)
  Receive Date: 20181026
  Receipt Date: 20181026
  Transmission Date: 20190205
  Serious: Yes (Other)
  Sender: FDA-Public Use
  Company Number: None

PATIENT
  Age: 23 Year
  Sex: Female
  Weight: 73.7 kg

DRUGS (2)
  1. OXYTOCIN. [Suspect]
     Active Substance: OXYTOCIN
  2. VIAL2BAG DC ADMIXTURE SYSTEM (DEVICE) [Suspect]
     Active Substance: DEVICE

REACTIONS (5)
  - Uterine tachysystole [None]
  - Product storage error [None]
  - Product preparation error [None]
  - Incorrect dose administered by device [None]
  - Product availability issue [None]

NARRATIVE: CASE EVENT DATE: 20181013
